FAERS Safety Report 24107314 (Version 2)
Quarter: 2024Q3

REPORT INFORMATION
  Report Type: Spontaneous
  Country: JP (occurrence: JP)
  Receive Date: 20240718
  Receipt Date: 20240731
  Transmission Date: 20241016
  Serious: Yes (Life-Threatening, Hospitalization, Other)
  Sender: ALKEM
  Company Number: None

PATIENT
  Age: 40 Year
  Sex: Female
  Weight: 43 kg

DRUGS (8)
  1. EVEROLIMUS [Suspect]
     Active Substance: EVEROLIMUS
     Indication: Immunosuppressant drug therapy
     Dosage: UNK
     Route: 065
  2. TACROLIMUS [Suspect]
     Active Substance: TACROLIMUS
     Indication: Immunosuppressant drug therapy
     Dosage: UNK
     Route: 065
  3. DEXAMETHASONE [Suspect]
     Active Substance: DEXAMETHASONE
     Indication: Immunosuppressant drug therapy
     Dosage: UNK
     Route: 065
  4. DEXAMETHASONE [Suspect]
     Active Substance: DEXAMETHASONE
     Indication: COVID-19
  5. PREDNISOLONE [Suspect]
     Active Substance: PREDNISOLONE
     Indication: Immunosuppressant drug therapy
     Dosage: UNK
     Route: 065
  6. REMDESIVIR [Suspect]
     Active Substance: REMDESIVIR
     Indication: Immunosuppressant drug therapy
     Dosage: UNK
     Route: 065
  7. INSULIN NOS [Concomitant]
     Active Substance: INSULIN NOS
     Indication: Type 1 diabetes mellitus
     Dosage: UNK
     Route: 065
  8. PROTAMINE [Concomitant]
     Active Substance: PROTAMINE
     Indication: Heparin neutralisation therapy
     Dosage: UNK
     Route: 065

REACTIONS (10)
  - Aortic valve incompetence [Recovering/Resolving]
  - Acute respiratory distress syndrome [Recovering/Resolving]
  - Anuria [Recovering/Resolving]
  - Cerebral haemorrhage [Recovering/Resolving]
  - Corynebacterium infection [Recovering/Resolving]
  - Endocarditis [Recovering/Resolving]
  - Kidney transplant rejection [Recovering/Resolving]
  - Respiratory acidosis [Recovering/Resolving]
  - Sepsis [Recovering/Resolving]
  - COVID-19 [Recovered/Resolved]

NARRATIVE: CASE EVENT DATE: 20220101
